FAERS Safety Report 7053084-9 (Version None)
Quarter: 2010Q4

REPORT INFORMATION
  Report Type: 
  Country: None (occurrence: None)
  Receive Date: 20101020
  Receipt Date: 20101012
  Transmission Date: 20110411
  Serious: Yes (Hospitalization, Other)
  Sender: FDA-Public Use
  Company Number: GB-JNJFOC-20101003458

PATIENT
  Age: 68 Year
  Sex: Female

DRUGS (9)
  1. IBUPROFEN [Suspect]
     Route: 048
  2. IBUPROFEN [Suspect]
     Indication: POSTOPERATIVE ANALGESIA
     Route: 048
  3. RIVAROXABAN [Suspect]
     Indication: THROMBOSIS PROPHYLAXIS
     Route: 048
  4. ASPIRIN [Suspect]
     Indication: CARDIOVASCULAR DISORDER
     Route: 048
  5. ATENOLOL [Concomitant]
  6. ACETAMINOPHEN AND CODEINE PHOSPHATE [Concomitant]
  7. LEVOTHYROXINE SODIUM [Concomitant]
  8. MIRTAZAPINE [Concomitant]
  9. RAMIPRIL [Concomitant]

REACTIONS (2)
  - HYPOTENSION [None]
  - OESOPHAGITIS HAEMORRHAGIC [None]
